FAERS Safety Report 18969731 (Version 1)
Quarter: 2021Q1

REPORT INFORMATION
  Report Type: Report from Study
  Country: US (occurrence: US)
  Receive Date: 20210304
  Receipt Date: 20210304
  Transmission Date: 20210420
  Serious: Yes (Other)
  Sender: FDA-Public Use
  Company Number: US-SHIRE-US202004672

PATIENT
  Sex: Female

DRUGS (3)
  1. HUMAN NORMAL IMMUNOGLOBULIN; LIQUID [Suspect]
     Active Substance: HUMAN IMMUNOGLOBULIN G
     Dosage: 53 GRAM, EVERY 3 WK
     Route: 065
  2. HUMAN NORMAL IMMUNOGLOBULIN; LIQUID [Suspect]
     Active Substance: HUMAN IMMUNOGLOBULIN G
     Indication: PRIMARY IMMUNODEFICIENCY SYNDROME
     Dosage: 52 GRAM, EVERY 3 WK
     Route: 065
  3. HUMAN NORMAL IMMUNOGLOBULIN; LIQUID [Suspect]
     Active Substance: HUMAN IMMUNOGLOBULIN G
     Dosage: 27 GRAM, Q2WEEKS
     Route: 065

REACTIONS (6)
  - Arthritis [Unknown]
  - Hypothyroidism [Unknown]
  - Osteomyelitis [Recovering/Resolving]
  - Sinusitis [Not Recovered/Not Resolved]
  - Gastrointestinal disorder [Unknown]
  - Depressed mood [Unknown]
